FAERS Safety Report 20481541 (Version 1)
Quarter: 2022Q1

REPORT INFORMATION
  Report Type: Spontaneous
  Country: AU (occurrence: AU)
  Receive Date: 20220216
  Receipt Date: 20220216
  Transmission Date: 20220423
  Serious: Yes (Other)
  Sender: FDA-Public Use
  Company Number: AU-TEVA-2022-AU-2008301

PATIENT
  Sex: Female

DRUGS (4)
  1. FENTANYL CITRATE [Interacting]
     Active Substance: FENTANYL CITRATE
     Route: 065
  2. DIFLUCAN [Interacting]
     Active Substance: FLUCONAZOLE
     Indication: Meningitis cryptococcal
     Route: 048
  3. BUPRENORPHINE [Interacting]
     Active Substance: BUPRENORPHINE
     Route: 065
  4. GABAPENTIN [Concomitant]
     Active Substance: GABAPENTIN

REACTIONS (5)
  - Autoimmune disorder [Unknown]
  - Drug interaction [Unknown]
  - Meningitis cryptococcal [Unknown]
  - Muscular weakness [Unknown]
  - Therapeutic product effect decreased [Unknown]
